FAERS Safety Report 17444546 (Version 1)
Quarter: 2020Q1

REPORT INFORMATION
  Report Type: Spontaneous
  Country: US (occurrence: US)
  Receive Date: 20200207
  Receipt Date: 20200207
  Transmission Date: 20200409
  Serious: Yes (Hospitalization)
  Sender: FDA-Public Use
  Company Number: None

PATIENT
  Sex: Male

DRUGS (11)
  1. LABETALOL [Concomitant]
     Active Substance: LABETALOL\LABETALOL HYDROCHLORIDE
  2. VENTOLIN [Concomitant]
     Active Substance: ALBUTEROL SULFATE
  3. BETEMETH [Concomitant]
  4. TACROLIMUS. [Concomitant]
     Active Substance: TACROLIMUS
  5. ACTHAR [Suspect]
     Active Substance: CORTICOTROPIN
     Indication: GLOMERULAR VASCULAR DISORDER
     Dosage: ?          OTHER FREQUENCY:BIW;?
     Route: 058
     Dates: start: 20180302
  6. HYDRALAZINE [Concomitant]
     Active Substance: HYDRALAZINE HYDROCHLORIDE
  7. PANTOPRAZOLE [Concomitant]
     Active Substance: PANTOPRAZOLE
  8. LISINOPRIL. [Concomitant]
     Active Substance: LISINOPRIL
  9. BUMETANIDE. [Concomitant]
     Active Substance: BUMETANIDE
  10. KLOR-CON M10 [Concomitant]
     Active Substance: POTASSIUM CHLORIDE
  11. ATORVASTATIN [Concomitant]
     Active Substance: ATORVASTATIN

REACTIONS (3)
  - Dizziness [None]
  - Fatigue [None]
  - Road traffic accident [None]
